FAERS Safety Report 11983367 (Version 3)
Quarter: 2016Q1

REPORT INFORMATION
  Report Type: Spontaneous
  Country: BR (occurrence: BR)
  Receive Date: 20160201
  Receipt Date: 20160216
  Transmission Date: 20160526
  Serious: Yes (Life-Threatening, Hospitalization, Other)
  Sender: FDA-Public Use
  Company Number: BR-PFIZER INC-2016052254

PATIENT
  Age: 64 Year
  Sex: Female
  Weight: 69 kg

DRUGS (13)
  1. ATENOLOL. [Suspect]
     Active Substance: ATENOLOL
     Indication: BLOOD PRESSURE ABNORMAL
     Dosage: 50 MG, 1X/DAY
     Route: 048
     Dates: start: 2003
  2. MODURETIC 5-50 [Suspect]
     Active Substance: AMILORIDE HYDROCHLORIDE\HYDROCHLOROTHIAZIDE
     Dosage: 25/2.5 MG, DAILY
     Route: 048
  3. CLOPIDOGREL [Concomitant]
     Active Substance: CLOPIDOGREL BISULFATE
     Indication: MYOCARDIAL INFARCTION
     Dosage: 75 MG, 1X/DAY
     Route: 048
     Dates: start: 201511
  4. ASPIRIN. [Concomitant]
     Active Substance: ASPIRIN
     Indication: AORTIC ANEURYSM
     Dosage: UNK UNK, 1X/DAY
     Route: 048
     Dates: start: 2006
  5. MICARDIS [Concomitant]
     Active Substance: TELMISARTAN
     Indication: BLOOD PRESSURE ABNORMAL
     Dosage: 80 MG, 1X/DAY
     Route: 048
     Dates: start: 201511
  6. SELOZOK [Suspect]
     Active Substance: METOPROLOL SUCCINATE
     Indication: BLOOD PRESSURE ABNORMAL
     Dosage: 100 MG, 1X/DAY
     Route: 048
     Dates: start: 201511
  7. ATENSINA [Concomitant]
     Active Substance: CLONIDINE
     Indication: BLOOD PRESSURE ABNORMAL
     Dosage: UNK, 2X/DAY
     Route: 048
     Dates: start: 201501
  8. ATORVASTATIN [Concomitant]
     Active Substance: ATORVASTATIN
     Indication: BLOOD CHOLESTEROL ABNORMAL
  9. PURAN [Concomitant]
     Active Substance: LEVOTHYROXINE SODIUM
     Indication: HYPOTHYROIDISM
     Dosage: 62.5 MG, 1X/DAY
     Route: 048
  10. PRESSAT [Concomitant]
     Active Substance: AMLODIPINE BESYLATE
     Indication: BLOOD PRESSURE ABNORMAL
     Dosage: UNK, 1X/DAY
     Route: 048
     Dates: start: 201501
  11. MODURETIC 5-50 [Suspect]
     Active Substance: AMILORIDE HYDROCHLORIDE\HYDROCHLOROTHIAZIDE
     Indication: BLOOD PRESSURE ABNORMAL
     Dosage: 50/5 MG, DAILY
     Route: 048
     Dates: start: 2003
  12. ASPIRIN. [Concomitant]
     Active Substance: ASPIRIN
     Indication: INTESTINAL ISCHAEMIA
     Dosage: UNK, 1X/DAY
     Route: 048
     Dates: start: 2006
  13. FUROSEMIDE. [Concomitant]
     Active Substance: FUROSEMIDE
     Indication: BLOOD PRESSURE ABNORMAL
     Dosage: 40 MG, 1X/DAY
     Route: 048
     Dates: start: 201511

REACTIONS (5)
  - Hypertension [Not Recovered/Not Resolved]
  - Coronary artery occlusion [Recovered/Resolved]
  - Myocardial infarction [Recovered/Resolved]
  - Intestinal ischaemia [Recovered/Resolved]
  - Aortic aneurysm [Recovered/Resolved]

NARRATIVE: CASE EVENT DATE: 2006
